FAERS Safety Report 6692880-4 (Version None)
Quarter: 2010Q2

REPORT INFORMATION
  Report Type: 
  Country: None (occurrence: None)
  Receive Date: 20100419
  Receipt Date: 20100406
  Transmission Date: 20101027
  Serious: Yes (Other)
  Sender: FDA-Public Use
  Company Number: 007110

PATIENT
  Sex: Female
  Weight: 77.6 kg

DRUGS (3)
  1. METHYLPHENIDATE HCL [Suspect]
     Indication: PSYCHOMOTOR HYPERACTIVITY
     Dosage: 70 MG, QD, ORAL
     Route: 048
     Dates: start: 20060101, end: 20081001
  2. EQUASYM (EQUASYM) [Suspect]
     Indication: ATTENTION DEFICIT/HYPERACTIVITY DISORDER
     Dosage: 40 MG QD, ORAL
     Route: 048
     Dates: end: 20081001
  3. DESOGESTREL AND ETHINYL ESTRADIOL [Concomitant]

REACTIONS (11)
  - ANAEMIA [None]
  - BLOOD PRESSURE INCREASED [None]
  - DRUG EXPOSURE DURING PREGNANCY [None]
  - FATIGUE [None]
  - FOOD CRAVING [None]
  - HEADACHE [None]
  - MALAISE [None]
  - PREGNANCY [None]
  - PROTEINURIA [None]
  - TREATMENT NONCOMPLIANCE [None]
  - VOMITING [None]
